FAERS Safety Report 6267808-1 (Version None)
Quarter: 2009Q3

REPORT INFORMATION
  Report Type: 
  Country: None (occurrence: None)
  Receive Date: 20090714
  Receipt Date: 20090601
  Transmission Date: 20100115
  Serious: No
  Sender: FDA-Public Use
  Company Number: US-BAYER-200911701BCC

PATIENT
  Age: 57 Year
  Sex: Female
  Weight: 91 kg

DRUGS (1)
  1. ALEVE ARTHRITS CAPLETS [Suspect]
     Indication: ARTHRALGIA
     Dosage: UNIT DOSE: 220 MG
     Route: 048
     Dates: end: 20090531

REACTIONS (1)
  - ARTHRALGIA [None]
